FAERS Safety Report 9192426 (Version 1)
Quarter: 2013Q1

REPORT INFORMATION
  Report Type: Spontaneous
  Country: US (occurrence: None)
  Receive Date: 20120703
  Receipt Date: 20120703
  Transmission Date: 20140127
  Serious: No
  Sender: FDA-Public Use
  Company Number: PHEH2012US009320

PATIENT
  Age: 63 Year
  Sex: Female

DRUGS (6)
  1. GILENYA (FTY) CAPSULE, 0.5 MG [Suspect]
     Route: 048
  2. BACLOFEN (BACLOFEN) TABLET [Concomitant]
  3. ZOLOFT (SERTRALINE HYDROCHLORIDE) [Concomitant]
  4. TRAMADOL HYDROCHLORIDE (TRAMADOL HYDROCHLORIDE) [Concomitant]
  5. GABAPENTIN (GABAPENTIN) TABLET [Concomitant]
  6. VITAMIN D (ERGOCALCIFEROL) [Concomitant]

REACTIONS (4)
  - Musculoskeletal stiffness [None]
  - Dyskinesia [None]
  - Hypoaesthesia [None]
  - Paraesthesia [None]
